FAERS Safety Report 5801220-1 (Version None)
Quarter: 2008Q3

REPORT INFORMATION
  Report Type: 
  Country: None (occurrence: None)
  Receive Date: 20080707
  Receipt Date: 20080623
  Transmission Date: 20090109
  Serious: Yes (Hospitalization, Other)
  Sender: FDA-Public Use
  Company Number: US-ELI_LILLY_AND_COMPANY-US200806005313

PATIENT
  Sex: Male
  Weight: 78.911 kg

DRUGS (8)
  1. ZYPREXA [Suspect]
     Dosage: 15 MG, EACH EVENING
  2. DEPAKOTE [Concomitant]
     Dosage: 1000 MG, EACH MORNING
  3. DEPAKOTE [Concomitant]
     Dosage: 500 MG, EACH EVENING
  4. PROTONIX [Concomitant]
  5. XANAX [Concomitant]
     Dosage: 0.5 MG, UNK
  6. SEROQUEL [Concomitant]
     Dosage: UNK, AS NEEDED
  7. ALCOHOL [Concomitant]
  8. NICOTINE [Concomitant]
     Dosage: 21 MG, DAILY (1/D)

REACTIONS (23)
  - ABNORMAL DREAMS [None]
  - AGITATION [None]
  - ATAXIA [None]
  - BLOOD PRESSURE INCREASED [None]
  - CONFUSIONAL STATE [None]
  - CONVULSION [None]
  - DIZZINESS [None]
  - DRUG INTERACTION [None]
  - FLATULENCE [None]
  - GAIT DISTURBANCE [None]
  - HALLUCINATION [None]
  - HOT FLUSH [None]
  - INSOMNIA [None]
  - LETHARGY [None]
  - MENTAL STATUS CHANGES [None]
  - MOTOR DYSFUNCTION [None]
  - NAUSEA [None]
  - RESTLESSNESS [None]
  - SEDATION [None]
  - SOMNOLENCE [None]
  - TONGUE BITING [None]
  - TREMOR [None]
  - VOMITING [None]
